FAERS Safety Report 8359758-1 (Version None)
Quarter: 2012Q2

REPORT INFORMATION
  Report Type: 
  Country: None (occurrence: None)
  Receive Date: 20120515
  Receipt Date: 20120507
  Transmission Date: 20120825
  Serious: Yes (Other)
  Sender: FDA-Public Use
  Company Number: PHHY2012FR000525

PATIENT
  Sex: Male
  Weight: 85 kg

DRUGS (8)
  1. VASTAREL [Concomitant]
     Indication: HYPERTENSION
     Dosage: UNK UKN, UNK
  2. ZOCOR [Concomitant]
     Indication: HYPERCHOLESTEROLAEMIA
     Dosage: 40 MG, DAILY
     Route: 048
  3. ASPIRIN [Concomitant]
     Dosage: 75 MG, DAILY
     Route: 048
  4. GLEEVEC [Suspect]
     Indication: CHRONIC MYELOID LEUKAEMIA
     Dosage: 400 MG, DAILY
     Route: 048
     Dates: start: 20090302, end: 20090406
  5. LORAZEPAM [Concomitant]
     Indication: ANXIETY
     Dosage: UNK UKN, UNK
     Route: 048
  6. COZAAR [Concomitant]
     Indication: HYPERTENSION
     Dosage: UNK UKN, UNK
     Route: 048
  7. GLEEVEC [Suspect]
     Dosage: 300 MG, DAILY
     Route: 048
     Dates: start: 20090406, end: 20120102
  8. SERC [Concomitant]
     Indication: DIZZINESS
     Dosage: 8 MG, DAILY
     Route: 048
     Dates: end: 20111009

REACTIONS (5)
  - HAEMATURIA [None]
  - PROSTATITIS [None]
  - BLADDER TRANSITIONAL CELL CARCINOMA RECURRENT [None]
  - NEOPLASM MALIGNANT [None]
  - METASTASIS [None]
